FAERS Safety Report 10444237 (Version 1)
Quarter: 2014Q3

REPORT INFORMATION
  Report Type: Spontaneous
  Country: IT (occurrence: IT)
  Receive Date: 20140910
  Receipt Date: 20140910
  Transmission Date: 20150326
  Serious: Yes (Hospitalization)
  Sender: FDA-Public Use
  Company Number: IT-TEVA-507434ISR

PATIENT
  Age: 33 Year
  Sex: Female

DRUGS (1)
  1. TAMOXIFEN [Suspect]
     Active Substance: TAMOXIFEN
     Dosage: 20MG/DAY
     Route: 065

REACTIONS (6)
  - Ovarian cyst [Recovered/Resolved]
  - Arthralgia [Unknown]
  - Oestradiol abnormal [Unknown]
  - Insomnia [Unknown]
  - Irritability [Unknown]
  - Endometrial hyperplasia [Recovered/Resolved]

NARRATIVE: CASE EVENT DATE: 201306
